FAERS Safety Report 24707281 (Version 1)
Quarter: 2024Q4

REPORT INFORMATION
  Report Type: Spontaneous
  Country: US (occurrence: US)
  Receive Date: 20241206
  Receipt Date: 20241206
  Transmission Date: 20250115
  Serious: No
  Sender: NOVO NORDISK
  Company Number: US-NOVOPROD-1144542

PATIENT
  Age: 81 Year
  Sex: Male

DRUGS (2)
  1. NOVOLOG [Suspect]
     Active Substance: INSULIN ASPART
     Indication: Product used for unknown indication
     Dosage: 0.4 IU
     Route: 058
     Dates: start: 20231111, end: 20231118
  2. NOVOLIN R [Suspect]
     Active Substance: INSULIN HUMAN
     Indication: Product used for unknown indication
     Dosage: 0.4 IU
     Route: 058
     Dates: start: 20230723, end: 20231110

REACTIONS (1)
  - Headache [Recovered/Resolved]
